FAERS Safety Report 9011853 (Version 3)
Quarter: 2013Q1

REPORT INFORMATION
  Report Type: Spontaneous
  Country: US (occurrence: None)
  Receive Date: 20121228
  Receipt Date: 20130222
  Transmission Date: 20140127
  Serious: Yes (Hospitalization)
  Sender: FDA-Public Use
  Company Number: JPI-P-026821

PATIENT
  Age: 20 Year
  Sex: Female
  Weight: 43.09 kg

DRUGS (4)
  1. XYREM (500 MILLIGRAM/MILLILITERS) (SODIUM OXYBATE) [Suspect]
     Indication: NARCOLEPSY
     Route: 048
     Dates: start: 20120906
  2. XYREM (500 MILLIGRAM/MILLILITERS) (SODIUM OXYBATE) [Suspect]
     Indication: SOMNOLENCE
     Route: 048
     Dates: start: 20120906
  3. VENLAFAXINE [Suspect]
     Indication: DEPRESSION
     Dates: start: 20121113, end: 20121128
  4. LISDEXAMFETAMINE DIMESYLATE [Concomitant]

REACTIONS (7)
  - Mania [None]
  - Insomnia [None]
  - Psychotic behaviour [None]
  - Paranoia [None]
  - Delusion [None]
  - Hallucinations, mixed [None]
  - Depression [None]
